FAERS Safety Report 4471773-7 (Version None)
Quarter: 2004Q4

REPORT INFORMATION
  Report Type: 
  Country: None (occurrence: None)
  Receive Date: 20041007
  Receipt Date: 20040920
  Transmission Date: 20050328
  Serious: Yes (Hospitalization)
  Sender: FDA-Public Use
  Company Number: 2004232606DE

PATIENT
  Age: 28 Year
  Sex: Male

DRUGS (3)
  1. BEXTRA [Suspect]
     Indication: RHEUMATOID ARTHRITIS
     Dosage: 20 MG, QD, ORAL
     Route: 048
     Dates: start: 20040828, end: 20040903
  2. AZULFIDINE [Concomitant]
  3. URBASON [Concomitant]

REACTIONS (1)
  - RASH MACULO-PAPULAR [None]
